FAERS Safety Report 5154405-4 (Version None)
Quarter: 2006Q4

REPORT INFORMATION
  Report Type: 
  Country: None (occurrence: None)
  Receive Date: 20061120
  Receipt Date: 20061106
  Transmission Date: 20070319
  Serious: Yes (Hospitalization)
  Sender: FDA-Public Use
  Company Number: ES-ELI_LILLY_AND_COMPANY-ES200611001047

PATIENT
  Age: 83 Year
  Sex: Female

DRUGS (4)
  1. FORTEO [Suspect]
     Indication: OSTEOPOROSIS
     Dosage: 20 UG, DAILY (1/D)
     Route: 058
     Dates: start: 20060101, end: 20061020
  2. MASTICAL [Concomitant]
     Indication: OSTEOPOROSIS
     Dates: end: 20061020
  3. XALATAN                                 /SWE/ [Concomitant]
     Indication: GLAUCOMA
  4. TIMOFTOL [Concomitant]
     Indication: GLAUCOMA

REACTIONS (1)
  - MYOCARDIAL INFARCTION [None]
